FAERS Safety Report 9129252 (Version 1)
Quarter: 2013Q1

REPORT INFORMATION
  Report Type: Spontaneous
  Country: US (occurrence: US)
  Receive Date: 20130228
  Receipt Date: 20130228
  Transmission Date: 20140127
  Serious: No
  Sender: FDA-Public Use
  Company Number: US-MYLANLABS-2012S1009485

PATIENT
  Age: 58 Year
  Sex: Male
  Weight: 79.38 kg

DRUGS (2)
  1. METFORMIN HYDROCHLORIDE [Suspect]
     Indication: GLUCOSE TOLERANCE IMPAIRED
     Dates: start: 201107
  2. METFORMIN HYDROCHLORIDE [Suspect]
     Indication: GLUCOSE TOLERANCE IMPAIRED
     Dates: start: 201204, end: 201204

REACTIONS (3)
  - Vision blurred [Recovered/Resolved]
  - Weight increased [Recovered/Resolved]
  - Fatigue [Recovered/Resolved]
